FAERS Safety Report 5612524-X (Version None)
Quarter: 2008Q1

REPORT INFORMATION
  Report Type: 
  Country: None (occurrence: None)
  Receive Date: 20080204
  Receipt Date: 20080122
  Transmission Date: 20080703
  Serious: Yes (Death)
  Sender: FDA-Public Use
  Company Number: US-KINGPHARMUSA00001-K200800110

PATIENT

DRUGS (11)
  1. AVINZA [Suspect]
     Route: 048
  2. OXYCODONE [Suspect]
     Route: 048
  3. UNKNOWN DRUG [Suspect]
     Route: 048
  4. ACETAMINOPHEN [Suspect]
     Route: 048
  5. DIPHENHYDRAMINE HCL [Suspect]
     Route: 048
  6. VERAPAMIL [Suspect]
     Route: 048
  7. PROMETHAZINE [Suspect]
     Route: 048
  8. CYCLOBENZAPRINE HCL [Suspect]
     Route: 048
  9. TEMAZEPAM [Suspect]
     Route: 048
  10. ZOLPIDEM [Suspect]
     Route: 048
  11. CARISOPRODOL [Suspect]
     Route: 048

REACTIONS (1)
  - CARDIO-RESPIRATORY ARREST [None]
